FAERS Safety Report 17916993 (Version 1)
Quarter: 2020Q2

REPORT INFORMATION
  Report Type: Spontaneous
  Country: KR (occurrence: KR)
  Receive Date: 20200619
  Receipt Date: 20200619
  Transmission Date: 20200714
  Serious: Yes (Hospitalization, Other)
  Sender: FDA-Public Use
  Company Number: KR-JNJFOC-20200605165

PATIENT
  Age: 83 Year
  Sex: Male

DRUGS (20)
  1. LINEZOLID. [Suspect]
     Active Substance: LINEZOLID
     Indication: TUBERCULOSIS
     Route: 065
     Dates: start: 20200115
  2. CORDARONE [Concomitant]
     Active Substance: AMIODARONE HYDROCHLORIDE
     Route: 042
  3. SIRTURO [Suspect]
     Active Substance: BEDAQUILINE FUMARATE
     Indication: TUBERCULOSIS
     Dosage: (DURING INTENSIVE CARE PERIOD)
     Route: 048
     Dates: start: 20200115
  4. CLOFAZIMINE [Suspect]
     Active Substance: CLOFAZIMINE
     Indication: TUBERCULOSIS
     Route: 065
     Dates: start: 20200115
  5. SEROQUEL [Concomitant]
     Active Substance: QUETIAPINE FUMARATE
  6. CYCLOSERINE. [Suspect]
     Active Substance: CYCLOSERINE
     Route: 065
     Dates: start: 20200129
  7. ZYPREXA [Concomitant]
     Active Substance: OLANZAPINE
     Dosage: TIME HS(ALTHOUGH THE PATIENT ADMINISTERED ABOVE MENTIONED NP MEDICATIONS, THE PATIENT WAS IRRITABLE
  8. SIRTURO [Suspect]
     Active Substance: BEDAQUILINE FUMARATE
     Dosage: (DURING INTENSIVE CARE PERIOD)
     Route: 048
     Dates: start: 20200129
  9. PROTIONAMIDE [Suspect]
     Active Substance: PROTIONAMIDE
     Indication: TUBERCULOSIS
     Route: 065
     Dates: start: 20200115
  10. CYCLOSERINE. [Suspect]
     Active Substance: CYCLOSERINE
     Indication: TUBERCULOSIS
     Route: 065
     Dates: start: 20200115
  11. AMIKACIN. [Suspect]
     Active Substance: AMIKACIN
     Indication: TUBERCULOSIS
     Route: 065
     Dates: start: 20200115
  12. AMIKACIN. [Suspect]
     Active Substance: AMIKACIN
     Route: 065
     Dates: start: 20200129
  13. LINEZOLID. [Suspect]
     Active Substance: LINEZOLID
     Route: 065
     Dates: start: 20200129
  14. DILATREND [Concomitant]
     Active Substance: CARVEDILOL
     Dosage: IT WAS ADDED FOR CONTROL OF HR, ACCORDING TO HR, THE DOSAGE WAS INCREASED/HOLD.ON 02-JUN-2020 AT THE
     Dates: end: 20191121
  15. SEROQUEL [Concomitant]
     Active Substance: QUETIAPINE FUMARATE
  16. PROTIONAMIDE [Suspect]
     Active Substance: PROTIONAMIDE
     Route: 065
     Dates: start: 20200129
  17. CORDARONE [Concomitant]
     Active Substance: AMIODARONE HYDROCHLORIDE
     Route: 048
  18. SEROQUEL [Concomitant]
     Active Substance: QUETIAPINE FUMARATE
     Dosage: MORNING
  19. CLOFAZIMINE [Suspect]
     Active Substance: CLOFAZIMINE
     Route: 065
     Dates: start: 20200129
  20. LORAVAN [Concomitant]
     Active Substance: LORAZEPAM
     Dosage: 2P(IT WAS ADDED BECAUSE ACTING OUT WAS SEVERE ALTHOUGH THE PATIENT WAS APPLIED WITH A BODY PROTECTOR

REACTIONS (3)
  - Hypokalaemia [Recovered/Resolved]
  - Electrocardiogram QT prolonged [Recovered/Resolved]
  - Hypotension [Unknown]
